FAERS Safety Report 7023649-9 (Version None)
Quarter: 2010Q3

REPORT INFORMATION
  Report Type: 
  Country: None (occurrence: None)
  Receive Date: 20100929
  Receipt Date: 20100929
  Transmission Date: 20110219
  Serious: Yes (Life-Threatening)
  Sender: FDA-Public Use
  Company Number: None

PATIENT
  Age: 35 Year
  Sex: Male
  Weight: 76.2043 kg

DRUGS (2)
  1. BUDEPRION -ANY- ANY- [Suspect]
     Indication: DEPRESSION
     Dosage: PO
     Route: 048
  2. BUPROPION -ANY  -ANY [Suspect]
     Indication: DEPRESSION
     Dosage: PO
     Route: 048

REACTIONS (3)
  - DEPRESSION [None]
  - DRUG INEFFECTIVE [None]
  - PRODUCT SUBSTITUTION ISSUE [None]
